FAERS Safety Report 12404237 (Version 2)
Quarter: 2016Q3

REPORT INFORMATION
  Report Type: Spontaneous
  Country: DE (occurrence: DE)
  Receive Date: 20160525
  Receipt Date: 20160720
  Transmission Date: 20161109
  Serious: Yes (Hospitalization, Disabling, Other)
  Sender: FDA-Public Use
  Company Number: DE-BAYER-2016-098000

PATIENT
  Age: 14 Year
  Sex: Female

DRUGS (2)
  1. YASMIN [Suspect]
     Active Substance: DROSPIRENONE\ETHINYL ESTRADIOL
     Indication: DYSMENORRHOEA
  2. YASMIN [Suspect]
     Active Substance: DROSPIRENONE\ETHINYL ESTRADIOL
     Indication: MENSTRUAL DISORDER
     Dosage: 1 DF, QD
     Route: 048
     Dates: start: 20070319

REACTIONS (45)
  - Musculoskeletal stiffness [Recovering/Resolving]
  - Headache [None]
  - Vaginal haemorrhage [None]
  - Dizziness [None]
  - Papilloedema [Recovered/Resolved]
  - Fear [None]
  - Headache [None]
  - Headache [None]
  - Dizziness [None]
  - Menorrhagia [None]
  - Nausea [None]
  - Feeding disorder [None]
  - Impaired quality of life [None]
  - Headache [Not Recovered/Not Resolved]
  - Nervousness [None]
  - Ear pain [None]
  - Motion sickness [None]
  - Brain oedema [None]
  - Benign intracranial hypertension [Recovered/Resolved]
  - Head discomfort [None]
  - Mental disorder [None]
  - Nausea [None]
  - Abdominal pain upper [None]
  - Disturbance in attention [None]
  - Fatigue [None]
  - VIth nerve paresis [Recovered/Resolved]
  - Procedural nausea [None]
  - Emotional disorder [None]
  - Nausea [None]
  - Headache [Recovering/Resolving]
  - Poor quality sleep [Recovering/Resolving]
  - Activities of daily living impaired [Not Recovered/Not Resolved]
  - Diplopia [Recovered/Resolved]
  - Mental disorder [None]
  - Activities of daily living impaired [None]
  - Deafness [None]
  - Anxiety disorder [Not Recovered/Not Resolved]
  - Haemorrhagic diathesis [None]
  - Intracranial venous sinus thrombosis [Recovering/Resolving]
  - Vomiting [Recovering/Resolving]
  - Post procedural discomfort [None]
  - Fear of death [None]
  - Helplessness [None]
  - Ear discomfort [None]
  - Hypoacusis [None]

NARRATIVE: CASE EVENT DATE: 2007
